FAERS Safety Report 20313101 (Version 1)
Quarter: 2022Q1

REPORT INFORMATION
  Report Type: Spontaneous
  Country: US (occurrence: US)
  Receive Date: 20220109
  Receipt Date: 20220109
  Transmission Date: 20220423
  Serious: No
  Sender: FDA-Public Use
  Company Number: US-SERVIER-S21011679

PATIENT

DRUGS (5)
  1. TIBSOVO [Suspect]
     Active Substance: IVOSIDENIB
     Indication: Myelodysplastic syndrome
     Dosage: 500 MG, DAILY
     Route: 048
     Dates: start: 20210409
  2. TIBSOVO [Suspect]
     Active Substance: IVOSIDENIB
     Indication: Off label use
  3. LEXAPRO [Concomitant]
     Active Substance: ESCITALOPRAM OXALATE
     Indication: Product used for unknown indication
     Dosage: UNK
     Route: 065
     Dates: end: 202110
  4. TN UNSPECIFIED [Concomitant]
     Indication: Product used for unknown indication
     Route: 065
  5. BACTRIM [Concomitant]
     Active Substance: SULFAMETHOXAZOLE\TRIMETHOPRIM
     Indication: Product used for unknown indication
     Route: 065

REACTIONS (3)
  - Drug therapeutic incompatibility [Unknown]
  - Nausea [Unknown]
  - Haemoglobin decreased [Unknown]

NARRATIVE: CASE EVENT DATE: 20210101
